FAERS Safety Report 5076381-5 (Version None)
Quarter: 2006Q3

REPORT INFORMATION
  Report Type: 
  Country: None (occurrence: None)
  Receive Date: 20060807
  Receipt Date: 20060726
  Transmission Date: 20061208
  Serious: Yes (Hospitalization, Other)
  Sender: FDA-Public Use
  Company Number: HQWYE420227JUL06

PATIENT
  Age: 13 Year
  Sex: Male

DRUGS (1)
  1. MYLOTARG [Suspect]
     Indication: ACUTE MYELOID LEUKAEMIA
     Dosage: 1  MG 1X PER 1 DAY INTRAVENOUS
     Route: 042
     Dates: start: 20060726, end: 20060726

REACTIONS (1)
  - ANAPHYLACTIC REACTION [None]
